FAERS Safety Report 16836459 (Version 2)
Quarter: 2019Q4

REPORT INFORMATION
  Report Type: Report from Study
  Country: KR (occurrence: KR)
  Receive Date: 20190921
  Receipt Date: 20191018
  Transmission Date: 20200122
  Serious: Yes (Hospitalization)
  Sender: FDA-Public Use
  Company Number: KR-009507513-1905KOR004087

PATIENT
  Sex: Female

DRUGS (17)
  1. HELPOVIN [Concomitant]
     Dosage: CONCENTRATION: 5G/10 ML; 2 QUANTITY, 1 DAY
     Dates: start: 20190409
  2. GODEX (ADENINE HYDROCHLORIDE (+) BIFENDATE (+) CARNITINE OROTATE (+) C [Concomitant]
     Dosage: 1 QUANTITY, 12 DAYS
     Route: 048
     Dates: start: 20190408, end: 20190412
  3. PEMBROLIZUMAB. [Suspect]
     Active Substance: PEMBROLIZUMAB
     Indication: THYMOMA MALIGNANT
     Dosage: QUANTITY 2, DAYS 1
     Dates: start: 20190422, end: 20190422
  4. PEMBROLIZUMAB. [Suspect]
     Active Substance: PEMBROLIZUMAB
     Dosage: QUANTITY 2, DAYS 1
     Dates: start: 20190813, end: 20190813
  5. PEMBROLIZUMAB. [Suspect]
     Active Substance: PEMBROLIZUMAB
     Dosage: QUANTITY 2, DAYS 1
     Dates: start: 20190627, end: 20190627
  6. URSA TABLETS [Concomitant]
     Dosage: 1 QUANTITY, 12 DAYS
     Route: 048
     Dates: start: 20190408, end: 20190412
  7. DEXTROSE. [Concomitant]
     Active Substance: DEXTROSE
     Dosage: 500 ML; QUANTITY 1, DAYS 4
     Dates: start: 20190409, end: 20190422
  8. PEMBROLIZUMAB. [Suspect]
     Active Substance: PEMBROLIZUMAB
     Dosage: QUANTITY 2, DAYS 1
     Dates: start: 20190513, end: 20190513
  9. SODIUM CHLORIDE. [Concomitant]
     Active Substance: SODIUM CHLORIDE
     Dosage: 100 MILLILITER, UNK; 1 QUANTITY, 2 DAYS
     Dates: start: 20190409, end: 20190422
  10. HEPARIN SODIUM. [Concomitant]
     Active Substance: HEPARIN SODIUM
     Dosage: CONCENTRATION: 1000 IUI/10 ML; 1 QUANTITY, 3 DAYS
     Dates: start: 20190412, end: 20190422
  11. PEMBROLIZUMAB. [Suspect]
     Active Substance: PEMBROLIZUMAB
     Dosage: QUANTITY 2, DAYS 1
     Dates: start: 20190905, end: 20190905
  12. CODEINE PHOSPHATE [Concomitant]
     Active Substance: CODEINE PHOSPHATE
     Dosage: 1 QUANTITY, 11 DAYS
     Route: 048
     Dates: start: 20190412, end: 20190415
  13. ULTRACET [Concomitant]
     Active Substance: ACETAMINOPHEN\TRAMADOL HYDROCHLORIDE
     Dosage: CONCENTRATION: 650/75 MG; 1 QUANTITY, 1 DAY
     Route: 048
     Dates: start: 20190409
  14. PEMBROLIZUMAB. [Suspect]
     Active Substance: PEMBROLIZUMAB
     Dosage: STRENGTH: 100MG/4ML; QUANTITY 2, DAYS 1
     Dates: start: 20190603, end: 20190603
  15. PEMBROLIZUMAB. [Suspect]
     Active Substance: PEMBROLIZUMAB
     Dosage: QUANTITY 2, DAYS 1
     Dates: start: 20191007, end: 20191007
  16. CURAN [Concomitant]
     Active Substance: RANITIDINE HYDROCHLORIDE
     Dosage: 1 QUANTITY, 10 DAYS
     Route: 048
     Dates: start: 20190412, end: 20190417
  17. LIDOCAINE. [Concomitant]
     Active Substance: LIDOCAINE
     Dosage: CONCENTRATION: 400MG/20ML; 1 QUANTITY, 1 DAY
     Dates: start: 20190409

REACTIONS (4)
  - Removal of foreign body [Unknown]
  - Inappropriate schedule of product administration [Unknown]
  - Adverse event [Unknown]
  - Product use in unapproved indication [Unknown]

NARRATIVE: CASE EVENT DATE: 2019
